FAERS Safety Report 23978772 (Version 1)
Quarter: 2024Q2

REPORT INFORMATION
  Report Type: Spontaneous
  Country: BE (occurrence: BE)
  Receive Date: 20240615
  Receipt Date: 20240615
  Transmission Date: 20240715
  Serious: Yes (Hospitalization, Other)
  Sender: FDA-Public Use
  Company Number: BE-ABBVIE-5798375

PATIENT
  Age: 32 Year

DRUGS (4)
  1. HUMIRA [Suspect]
     Active Substance: ADALIMUMAB
     Indication: Spondyloarthropathy
     Dosage: 160MG/80MG
     Route: 058
     Dates: start: 201405, end: 201508
  2. HUMIRA [Suspect]
     Active Substance: ADALIMUMAB
     Indication: Crohn^s disease
  3. METHOTREXATE [Concomitant]
     Active Substance: METHOTREXATE
     Indication: Product used for unknown indication
     Dosage: FORM STRENGTH: 15MG
     Route: 048
  4. PURINETHOL [Concomitant]
     Active Substance: MERCAPTOPURINE
     Indication: Product used for unknown indication
     Route: 048

REACTIONS (6)
  - Fistula of small intestine [Unknown]
  - Unevaluable event [Unknown]
  - Dyspepsia [Unknown]
  - Arthropathy [Unknown]
  - Drug ineffective [Unknown]
  - Abscess intestinal [Unknown]
